FAERS Safety Report 19377189 (Version 2)
Quarter: 2021Q3

REPORT INFORMATION
  Report Type: Spontaneous
  Country: US (occurrence: US)
  Receive Date: 20210604
  Receipt Date: 20210902
  Transmission Date: 20211014
  Serious: No
  Sender: FDA-Public Use
  Company Number: US-JNJFOC-20210549227

PATIENT
  Sex: Male

DRUGS (2)
  1. MENS ROGAINE EXTRA STRENGTH [Suspect]
     Active Substance: MINOXIDIL
     Indication: ACCIDENTAL EXPOSURE TO PRODUCT
  2. MENS ROGAINE EXTRA STRENGTH [Suspect]
     Active Substance: MINOXIDIL
     Indication: ALOPECIA
     Dosage: DOSE: HALF A CUP FULL
     Route: 061
     Dates: start: 20210131

REACTIONS (4)
  - Product formulation issue [Unknown]
  - Eye pain [Recovered/Resolved]
  - Accidental exposure to product [Unknown]
  - Poor quality product administered [Unknown]

NARRATIVE: CASE EVENT DATE: 2021
